FAERS Safety Report 24729810 (Version 2)
Quarter: 2024Q4

REPORT INFORMATION
  Report Type: Spontaneous
  Country: US (occurrence: US)
  Receive Date: 20241213
  Receipt Date: 20241218
  Transmission Date: 20250115
  Serious: No
  Sender: ELI LILLY AND COMPANY
  Company Number: US-ELI_LILLY_AND_COMPANY-US202412008386

PATIENT
  Age: 72 Year
  Sex: Female

DRUGS (2)
  1. TIRZEPATIDE [Suspect]
     Active Substance: TIRZEPATIDE
     Indication: Weight control
     Dosage: 2.5 MG, UNKNOWN
     Route: 058
     Dates: start: 202404, end: 202407
  2. TIRZEPATIDE [Suspect]
     Active Substance: TIRZEPATIDE
     Dosage: 5 MG, UNKNOWN
     Route: 058
     Dates: start: 20241025, end: 20241120

REACTIONS (7)
  - Allodynia [Unknown]
  - Skin burning sensation [Unknown]
  - Eye irritation [Unknown]
  - Product tampering [Unknown]
  - Skin sensitisation [Unknown]
  - Rash pruritic [Unknown]
  - Nausea [Recovered/Resolved]
